FAERS Safety Report 15731609 (Version 2)
Quarter: 2021Q3

REPORT INFORMATION
  Report Type: Spontaneous
  Country: US (occurrence: US)
  Receive Date: 20181217
  Receipt Date: 20210726
  Transmission Date: 20211014
  Serious: Yes (Other)
  Sender: FDA-Public Use
  Company Number: US-ELI_LILLY_AND_COMPANY-US201812005964

PATIENT
  Sex: Male

DRUGS (1)
  1. HUMALOG [Suspect]
     Active Substance: INSULIN LISPRO
     Indication: TYPE 1 DIABETES MELLITUS
     Dosage: 40 U DAILY AT SLIDING SCALE
     Route: 058

REACTIONS (3)
  - Syncope [Recovered/Resolved]
  - Lower limb fracture [Recovered/Resolved]
  - Blood glucose decreased [Recovered/Resolved]
